FAERS Safety Report 13518784 (Version 3)
Quarter: 2017Q2

REPORT INFORMATION
  Report Type: Report from Study
  Country: US (occurrence: US)
  Receive Date: 20170505
  Receipt Date: 20170629
  Transmission Date: 20170830
  Serious: Yes (Hospitalization)
  Sender: FDA-Public Use
  Company Number: US-UCBSA-2017015715

PATIENT
  Age: 78 Year
  Sex: Female
  Weight: 64 kg

DRUGS (4)
  1. CERTOLIZUMAB PEGOL [Suspect]
     Active Substance: CERTOLIZUMAB PEGOL
     Dosage: 400 MG, MONTHLY (QM)
     Route: 058
     Dates: start: 201703, end: 2017
  2. CERTOLIZUMAB PEGOL [Suspect]
     Active Substance: CERTOLIZUMAB PEGOL
     Indication: RHEUMATOID ARTHRITIS
     Dosage: 400 MG, EV 2 WEEKS(QOW)
     Route: 058
     Dates: start: 2017
  3. PREDNISONE. [Concomitant]
     Active Substance: PREDNISONE
     Indication: PRODUCT USED FOR UNKNOWN INDICATION
     Dosage: UNK
  4. LASIX [Concomitant]
     Active Substance: FUROSEMIDE
     Indication: PRODUCT USED FOR UNKNOWN INDICATION
     Dosage: 40 MG, 2X/DAY (BID)

REACTIONS (18)
  - Asthenia [Recovering/Resolving]
  - Large intestinal ulcer [Recovered/Resolved]
  - Pharyngitis streptococcal [Recovered/Resolved]
  - Aphthous ulcer [Recovered/Resolved]
  - Diarrhoea [Not Recovered/Not Resolved]
  - Myalgia [Not Recovered/Not Resolved]
  - Influenza [Recovered/Resolved]
  - Oedema [Recovering/Resolving]
  - Fall [Recovered/Resolved]
  - Local swelling [Not Recovered/Not Resolved]
  - Proctalgia [Recovered/Resolved]
  - Diverticulitis [Unknown]
  - Rectal haemorrhage [Recovered/Resolved]
  - Night sweats [Unknown]
  - Joint swelling [Not Recovered/Not Resolved]
  - Urinary tract infection [Unknown]
  - Heart rate increased [Unknown]
  - Pain in extremity [Unknown]

NARRATIVE: CASE EVENT DATE: 2017
